FAERS Safety Report 19941249 (Version 1)
Quarter: 2021Q4

REPORT INFORMATION
  Report Type: Spontaneous
  Country: FR (occurrence: FR)
  Receive Date: 20211012
  Receipt Date: 20211012
  Transmission Date: 20220304
  Serious: Yes (Hospitalization, Other)
  Sender: FDA-Public Use
  Company Number: FI-ASTRAZENECA-2021A357377

PATIENT
  Age: 63 Year
  Sex: Female
  Weight: 59 kg

DRUGS (24)
  1. CARBOPLATIN [Suspect]
     Active Substance: CARBOPLATIN
     Indication: Ovarian cancer
     Dosage: 495 MILLIGRAM,3WEEK
     Route: 042
     Dates: start: 20210413
  2. CARBOPLATIN [Suspect]
     Active Substance: CARBOPLATIN
     Dosage: 650 MILLIGRAM,3 WEEK
     Route: 042
     Dates: start: 20210506
  3. CARBOPLATIN [Suspect]
     Active Substance: CARBOPLATIN
     Dosage: 650 MILLIGRAM,3 WEEK
     Route: 042
     Dates: start: 20210528
  4. CARBOPLATIN [Suspect]
     Active Substance: CARBOPLATIN
     Dosage: 650 MILLIGRAM,3 WEEK
     Route: 042
     Dates: start: 20210617
  5. CARBOPLATIN [Suspect]
     Active Substance: CARBOPLATIN
     Dosage: 650 MILLIGRAM,3 WEEK
     Route: 042
     Dates: start: 20210708
  6. PACLITAXEL [Suspect]
     Active Substance: PACLITAXEL
     Indication: Ovarian cancer
     Dosage: 80 MILLIGRAM/SQ. METER
     Route: 042
     Dates: start: 20171207, end: 20180312
  7. PACLITAXEL [Suspect]
     Active Substance: PACLITAXEL
     Dosage: 300 MILLIGRAM,3 WEEK
     Route: 042
     Dates: start: 20210413, end: 20210413
  8. PACLITAXEL [Suspect]
     Active Substance: PACLITAXEL
     Dosage: 310 MILLIGRAM,3 WEEK
     Route: 042
     Dates: start: 20210506, end: 20210506
  9. PACLITAXEL [Suspect]
     Active Substance: PACLITAXEL
     Dosage: 310 MILLIGRAM,3 WEEK
     Route: 042
     Dates: start: 20210528, end: 20210528
  10. PACLITAXEL [Suspect]
     Active Substance: PACLITAXEL
     Dosage: 310 MILLIGRAM,3 WEEK
     Route: 042
     Dates: start: 20210617, end: 20210617
  11. PACLITAXEL [Suspect]
     Active Substance: PACLITAXEL
     Dosage: 310 MILLIGRAM,3 WEEK
     Route: 042
     Dates: start: 20210708, end: 20210708
  12. DURVALUMAB [Suspect]
     Active Substance: DURVALUMAB
     Indication: Ovarian cancer
     Dosage: 22 MILLILITER,3 WEEK
     Route: 042
     Dates: start: 20210506, end: 20210506
  13. DURVALUMAB [Suspect]
     Active Substance: DURVALUMAB
     Dosage: 22 MILLILITER,3 WEEK
     Route: 042
     Dates: start: 20210708, end: 20210708
  14. OLAPARIB [Suspect]
     Active Substance: OLAPARIB
     Indication: Ovarian cancer
     Dosage: 300 MILLIGRAM, TWO TIMES A DAY
     Route: 048
  15. MORPHINE SULFATE [Concomitant]
     Active Substance: MORPHINE SULFATE
     Indication: Pain
     Dosage: 5 MILLIGRAM, ONCE A DAY
     Route: 048
     Dates: start: 20210421
  16. BEVACIZUMAB [Concomitant]
     Active Substance: BEVACIZUMAB
     Indication: Ovarian cancer
     Dosage: 1000 MILLIGRAM,3 WEEK
     Route: 042
     Dates: start: 20210506, end: 20210506
  17. BEVACIZUMAB [Concomitant]
     Active Substance: BEVACIZUMAB
     Dosage: 1000 MILLIGRAM,3 WEEK
     Route: 042
     Dates: start: 20210528, end: 20210528
  18. BEVACIZUMAB [Concomitant]
     Active Substance: BEVACIZUMAB
     Dosage: 1000 MILLIGRAM,3 WEEK
     Route: 042
     Dates: start: 20210617, end: 20210617
  19. GAVISCON [Concomitant]
     Active Substance: ALUMINUM HYDROXIDE\MAGNESIUM CARBONATE
     Indication: Reflux gastritis
     Dosage: 10 MILLILITER, ONCE A DAY
     Route: 048
     Dates: start: 20210421
  20. PANTOPRAZOLE [Concomitant]
     Active Substance: PANTOPRAZOLE
     Indication: Reflux gastritis
     Dosage: 10 MILLILITER, ONCE A DAY
     Route: 042
     Dates: start: 20210421
  21. ACETAMINOPHEN [Concomitant]
     Active Substance: ACETAMINOPHEN
     Indication: Pain
     Dosage: 4 GRAM, ONCE A DAY
     Route: 042
     Dates: start: 20210421
  22. PRIMPERAN [Concomitant]
     Active Substance: METOCLOPRAMIDE HYDROCHLORIDE
     Indication: Nausea
     Dosage: 30 MILLIGRAM, ONCE A DAY
     Route: 042
     Dates: start: 20210421
  23. SODIUM CHLORIDE [Concomitant]
     Active Substance: SODIUM CHLORIDE
     Indication: Faecal vomiting
     Dosage: 1000 MILLILITER, ONCE A DAY
     Route: 042
     Dates: start: 20210421
  24. Spasfon [Concomitant]
     Indication: Pain
     Dosage: 4 MILLILITER, ONCE A DAY
     Route: 042
     Dates: start: 20210421

REACTIONS (3)
  - Fatigue [Recovered/Resolved]
  - Nausea [Recovered/Resolved]
  - Chills [Recovered/Resolved]

NARRATIVE: CASE EVENT DATE: 20210421
